FAERS Safety Report 4630097-5 (Version None)
Quarter: 2005Q2

REPORT INFORMATION
  Report Type: 
  Country: None (occurrence: None)
  Receive Date: 20050408
  Receipt Date: 20050329
  Transmission Date: 20051028
  Serious: Yes (Other)
  Sender: FDA-Public Use
  Company Number: US-MERCK-0503USA05150

PATIENT
  Sex: Female

DRUGS (2)
  1. COSOPT [Suspect]
     Route: 047
     Dates: start: 20050101
  2. FLUOROMETHOLONE [Concomitant]
     Route: 065

REACTIONS (2)
  - BLINDNESS [None]
  - BLINDNESS TRANSIENT [None]
